FAERS Safety Report 17534632 (Version 2)
Quarter: 2020Q2

REPORT INFORMATION
  Report Type: Spontaneous
  Country: CA (occurrence: CA)
  Receive Date: 20200312
  Receipt Date: 20200409
  Transmission Date: 20200713
  Serious: No
  Sender: FDA-Public Use
  Company Number: CA-AKCEA THERAPEUTICS-2019IS001483

PATIENT

DRUGS (5)
  1. TEA, GREEN [Concomitant]
     Active Substance: GREEN TEA LEAF
     Indication: PRODUCT USED FOR UNKNOWN INDICATION
     Dosage: 400 MG, QD
     Route: 048
  2. TEGSEDI [Suspect]
     Active Substance: INOTERSEN SODIUM
     Indication: FAMILIAL AMYLOIDOSIS
     Dosage: 284 MG, QW
     Route: 058
     Dates: start: 20190227
  3. GABAPENTIN. [Concomitant]
     Active Substance: GABAPENTIN
     Indication: NEURALGIA
     Dosage: 400 MG, QD
     Route: 048
  4. RABEPRAZOLE [Concomitant]
     Active Substance: RABEPRAZOLE
     Indication: GASTROOESOPHAGEAL REFLUX DISEASE
     Dosage: 10 MG, BID
     Route: 048
  5. DIFLUNISAL. [Concomitant]
     Active Substance: DIFLUNISAL
     Dosage: 500 MG, BID
     Route: 048

REACTIONS (1)
  - Carbon dioxide increased [Not Recovered/Not Resolved]

NARRATIVE: CASE EVENT DATE: 20190514
